FAERS Safety Report 15958283 (Version 4)
Quarter: 2020Q1

REPORT INFORMATION
  Report Type: Spontaneous
  Country: JP (occurrence: JP)
  Receive Date: 20190213
  Receipt Date: 20200225
  Transmission Date: 20200409
  Serious: Yes (Other)
  Sender: FDA-Public Use
  Company Number: PHJP2019JP001545

PATIENT
  Age: 28 Year
  Sex: Female

DRUGS (4)
  1. GLIVEC [Suspect]
     Active Substance: IMATINIB MESYLATE
     Indication: CHRONIC MYELOID LEUKAEMIA
     Dosage: 400 MG, UNK
     Route: 048
     Dates: start: 201411
  2. GLIVEC [Suspect]
     Active Substance: IMATINIB MESYLATE
     Dosage: 100 MG, UNK
     Route: 048
     Dates: start: 20170901
  3. GLIVEC [Suspect]
     Active Substance: IMATINIB MESYLATE
     Dosage: UNK, LOW DOSE (ON THE PATIENT^S OWN DECISION)
     Route: 048
     Dates: end: 20160615
  4. GLIVEC [Suspect]
     Active Substance: IMATINIB MESYLATE
     Dosage: 600 MG, UNK
     Route: 048
     Dates: start: 201411

REACTIONS (4)
  - Vaginal haematoma [Unknown]
  - Vaginal haemorrhage [Unknown]
  - Maternal exposure before pregnancy [Unknown]
  - Premature delivery [Unknown]

NARRATIVE: CASE EVENT DATE: 20170810
